FAERS Safety Report 21480572 (Version 1)
Quarter: 2022Q4

REPORT INFORMATION
  Report Type: Spontaneous
  Country: CA (occurrence: CA)
  Receive Date: 20221019
  Receipt Date: 20221019
  Transmission Date: 20230113
  Serious: Yes (Other)
  Sender: FDA-Public Use
  Company Number: CA-TAIHO-2022-001665

PATIENT
  Sex: Male

DRUGS (4)
  1. LONSURF [Suspect]
     Active Substance: TIPIRACIL HYDROCHLORIDE\TRIFLURIDINE
     Indication: Product used for unknown indication
     Dosage: CURRENT CYCLE, DOSAGE AND FREQUENCY UNKNOWN
     Route: 048
     Dates: start: 20211211
  2. CAPECITABINE [Suspect]
     Active Substance: CAPECITABINE
     Indication: Product used for unknown indication
     Dates: start: 202209
  3. ZIRABEV [Suspect]
     Active Substance: BEVACIZUMAB-BVZR
     Indication: Product used for unknown indication
     Dates: start: 202209
  4. APIXABAN [Concomitant]
     Active Substance: APIXABAN
     Indication: Thrombosis

REACTIONS (6)
  - Thrombosis [Unknown]
  - Deep vein thrombosis [Unknown]
  - Gastrointestinal haemorrhage [Unknown]
  - Bone marrow failure [Unknown]
  - Disease progression [Unknown]
  - Fatigue [Unknown]
